FAERS Safety Report 17905859 (Version 1)
Quarter: 2020Q2

REPORT INFORMATION
  Report Type: Spontaneous
  Country: US (occurrence: US)
  Receive Date: 20200616
  Receipt Date: 20200616
  Transmission Date: 20200714
  Serious: No
  Sender: FDA-Public Use
  Company Number: US-ROCHE-2465411

PATIENT
  Age: 67 Year
  Sex: Female

DRUGS (3)
  1. PREDNISONE. [Concomitant]
     Active Substance: PREDNISONE
  2. METHIMAZOLE. [Concomitant]
     Active Substance: METHIMAZOLE
  3. ACTEMRA [Suspect]
     Active Substance: TOCILIZUMAB
     Indication: ENDOCRINE OPHTHALMOPATHY
     Route: 058

REACTIONS (3)
  - Intentional product use issue [Unknown]
  - Off label use [Unknown]
  - No adverse event [Unknown]
